FAERS Safety Report 7283026-2 (Version None)
Quarter: 2011Q1

REPORT INFORMATION
  Report Type: 
  Country: None (occurrence: None)
  Receive Date: 20110204
  Receipt Date: 20110204
  Transmission Date: 20110831
  Serious: Yes (Other)
  Sender: FDA-Public Use
  Company Number: None

PATIENT
  Age: 42 Year
  Sex: Female
  Weight: 70.3075 kg

DRUGS (2)
  1. BOTOX [Suspect]
     Indication: SKIN WRINKLING
     Dosage: 20 UNITS EVERY 4 MONTHS INJECTED BESIDE EYES (CROWS FEET)
     Dates: start: 20100801
  2. BOTOX [Suspect]
     Indication: SKIN WRINKLING
     Dosage: 20 UNITS EVERY 4 MONTHS INJECTED BESIDE EYES (CROWS FEET)
     Dates: start: 20110103

REACTIONS (3)
  - DYSPHONIA [None]
  - DYSPHAGIA [None]
  - CHEST DISCOMFORT [None]
